FAERS Safety Report 6615482-4 (Version None)
Quarter: 2010Q1

REPORT INFORMATION
  Report Type: 
  Country: None (occurrence: None)
  Receive Date: 20100305
  Receipt Date: 20100115
  Transmission Date: 20100710
  Serious: Yes (Hospitalization, Other)
  Sender: FDA-Public Use
  Company Number: JP-JNJFOC-20091203162

PATIENT
  Age: 40 Year
  Sex: Male

DRUGS (2)
  1. CRAVIT [Suspect]
     Indication: URINARY TRACT INFECTION
     Route: 048
  2. ISEPAMICIN SULFATE [Suspect]
     Indication: DRUG USE FOR UNKNOWN INDICATION
     Route: 065

REACTIONS (2)
  - LIVER DISORDER [None]
  - RENAL DISORDER [None]
